APPROVED DRUG PRODUCT: METHYLIN
Active Ingredient: METHYLPHENIDATE HYDROCHLORIDE
Strength: 5MG/5ML
Dosage Form/Route: SOLUTION;ORAL
Application: N021419 | Product #001 | TE Code: AA
Applicant: SPECGX LLC
Approved: Dec 19, 2002 | RLD: Yes | RS: Yes | Type: RX